FAERS Safety Report 10934232 (Version 1)
Quarter: 2015Q1

REPORT INFORMATION
  Report Type: Spontaneous
  Country: SE (occurrence: SE)
  Receive Date: 20150320
  Receipt Date: 20150320
  Transmission Date: 20150721
  Serious: Yes (Disabling)
  Sender: FDA-Public Use
  Company Number: SE-009507513-1503SWE008784

PATIENT
  Age: 80 Year
  Sex: Female

DRUGS (11)
  1. CALCICHEW [Concomitant]
     Active Substance: CALCIUM CARBONATE
  2. FOSAMAX [Suspect]
     Active Substance: ALENDRONATE SODIUM
     Indication: OSTEOPOROSIS
     Dosage: 70 MG, QW
     Route: 048
  3. ALVEDON [Concomitant]
     Active Substance: ACETAMINOPHEN
  4. ENALAPRIL MALEATE. [Concomitant]
     Active Substance: ENALAPRIL MALEATE
  5. DUROFERON [Concomitant]
     Active Substance: FERROUS SULFATE\FERROUS SULFATE, DRIED
  6. LASIX [Concomitant]
     Active Substance: FUROSEMIDE
  7. METHOTREXATE [Concomitant]
     Active Substance: METHOTREXATE
  8. PREDNISOLONE. [Concomitant]
     Active Substance: PREDNISOLONE
  9. FOLACIN [Concomitant]
     Active Substance: FOLIC ACID
  10. KREDEX [Concomitant]
     Active Substance: CARVEDILOL
  11. TROMBYL [Concomitant]
     Active Substance: ASPIRIN

REACTIONS (1)
  - Ear canal abrasion [Not Recovered/Not Resolved]

NARRATIVE: CASE EVENT DATE: 20150311
